FAERS Safety Report 14410580 (Version 1)
Quarter: 2018Q1

REPORT INFORMATION
  Report Type: Spontaneous
  Country: US (occurrence: US)
  Receive Date: 20180119
  Receipt Date: 20180119
  Transmission Date: 20180509
  Serious: Yes (Other)
  Sender: FDA-Public Use
  Company Number: PHHY2018US003455

PATIENT
  Age: 40 Year
  Sex: Male

DRUGS (1)
  1. SPIRONOLACTONE. [Suspect]
     Active Substance: SPIRONOLACTONE
     Indication: GENDER REASSIGNMENT THERAPY
     Dosage: 100 MG, QD
     Route: 065

REACTIONS (10)
  - Dysstasia [Unknown]
  - Asthenia [Unknown]
  - Muscle spasms [Unknown]
  - Tremor [Unknown]
  - Fatigue [Unknown]
  - Dysphonia [Unknown]
  - Product use in unapproved indication [Unknown]
  - Throat tightness [Unknown]
  - Facial paresis [Unknown]
  - Bulbospinal muscular atrophy congenital [Unknown]
